FAERS Safety Report 6150478-0 (Version None)
Quarter: 2009Q2

REPORT INFORMATION
  Report Type: 
  Country: None (occurrence: None)
  Receive Date: 20090409
  Receipt Date: 20090402
  Transmission Date: 20091009
  Serious: Yes (Other)
  Sender: FDA-Public Use
  Company Number: MA-AVENTIS-200913389GDDC

PATIENT
  Age: 12 Year
  Sex: Female
  Weight: 48 kg

DRUGS (1)
  1. MINIRIN [Suspect]
     Indication: ENURESIS
     Route: 048
     Dates: start: 20071101, end: 20080201

REACTIONS (1)
  - WEIGHT INCREASED [None]
